FAERS Safety Report 17129193 (Version 1)
Quarter: 2019Q4

REPORT INFORMATION
  Report Type: Spontaneous
  Country: US (occurrence: US)
  Receive Date: 20191208
  Receipt Date: 20191208
  Transmission Date: 20200122
  Serious: No
  Sender: FDA-Public Use
  Company Number: None

PATIENT
  Age: 61 Year
  Sex: Female
  Weight: 90 kg

DRUGS (7)
  1. NP THYROID [Suspect]
     Active Substance: LEVOTHYROXINE\LIOTHYRONINE
     Indication: AUTOIMMUNE THYROIDITIS
     Dosage: ?          QUANTITY:30 TABLET(S);?
     Route: 048
  2. NAPROXEN 500MG [Concomitant]
     Active Substance: NAPROXEN
  3. OMEPRAZOLE 40MG [Concomitant]
     Active Substance: OMEPRAZOLE
  4. ARMOUR THYROID 120 MG QD IN A.M. [Concomitant]
  5. NP THYROID [Suspect]
     Active Substance: LEVOTHYROXINE\LIOTHYRONINE
     Indication: AUTOIMMUNE THYROIDITIS
     Dosage: ?          QUANTITY:45 TABLET(S);?
     Route: 048
  6. MULTIVITAMIN 1/2 TAB BID [Concomitant]
  7. FLAXSEED OIL 1000MG [Concomitant]

REACTIONS (11)
  - Gastrointestinal disorder [None]
  - Sleep disorder [None]
  - Product substitution issue [None]
  - Symptom recurrence [None]
  - Lethargy [None]
  - Constipation [None]
  - Product taste abnormal [None]
  - Fatigue [None]
  - Product odour abnormal [None]
  - Blood thyroid stimulating hormone increased [None]
  - Hypothyroidism [None]

NARRATIVE: CASE EVENT DATE: 20191111
